FAERS Safety Report 17472735 (Version 1)
Quarter: 2020Q1

REPORT INFORMATION
  Report Type: Spontaneous
  Country: US (occurrence: US)
  Receive Date: 20200227
  Receipt Date: 20200227
  Transmission Date: 20200409
  Serious: Yes (Death)
  Sender: FDA-Public Use
  Company Number: None

PATIENT
  Age: 37 Year
  Sex: Female
  Weight: 71 kg

DRUGS (1)
  1. ABEMACICLIB [Suspect]
     Active Substance: ABEMACICLIB
     Indication: BREAST CANCER METASTATIC
     Dates: start: 20191219, end: 20200127

REACTIONS (7)
  - Respiratory failure [None]
  - Pulmonary oedema [None]
  - Pulmonary alveolar haemorrhage [None]
  - Upper respiratory tract infection [None]
  - Malignant neoplasm progression [None]
  - Pneumonitis [None]
  - Pulmonary embolism [None]

NARRATIVE: CASE EVENT DATE: 20200127
